FAERS Safety Report 9431426 (Version 1)
Quarter: 2013Q3

REPORT INFORMATION
  Report Type: Spontaneous
  Country: NL (occurrence: NL)
  Receive Date: 20130730
  Receipt Date: 20130730
  Transmission Date: 20140515
  Serious: Yes (Other)
  Sender: FDA-Public Use
  Company Number: NL-PFIZER INC-2013215385

PATIENT
  Sex: Female

DRUGS (1)
  1. TERRA-CORTRIL [Suspect]
     Indication: EYE DISORDER

REACTIONS (4)
  - Rheumatoid arthritis [Unknown]
  - Burning sensation [Unknown]
  - Pruritus [Unknown]
  - Hyperhidrosis [Unknown]
